FAERS Safety Report 9057912 (Version 1)
Quarter: 2013Q1

REPORT INFORMATION
  Report Type: Spontaneous
  Country: US (occurrence: None)
  Receive Date: 20130204
  Receipt Date: 20130204
  Transmission Date: 20140127
  Serious: No
  Sender: FDA-Public Use
  Company Number: None

PATIENT
  Age: 6 Year
  Sex: Female
  Weight: 20.41 kg

DRUGS (1)
  1. MONTELUKAST SODIUM [Suspect]
     Indication: MULTIPLE ALLERGIES
     Dates: start: 20130201, end: 20130202

REACTIONS (4)
  - Nausea [None]
  - Headache [None]
  - Pharyngeal oedema [None]
  - Rash [None]
